FAERS Safety Report 7823655-8 (Version None)
Quarter: 2011Q4

REPORT INFORMATION
  Report Type: 
  Country: None (occurrence: None)
  Receive Date: 20111019
  Receipt Date: 20111019
  Transmission Date: 20120403
  Serious: No
  Sender: FDA-Public Use
  Company Number: None

PATIENT
  Sex: Female

DRUGS (1)
  1. BONE TISSUE HUMAN [Suspect]
     Dates: start: 20090713, end: 20090713

REACTIONS (4)
  - CONDITION AGGRAVATED [None]
  - BACK PAIN [None]
  - OFF LABEL USE [None]
  - MULTIPLE INJURIES [None]
